FAERS Safety Report 5817535-7 (Version None)
Quarter: 2008Q3

REPORT INFORMATION
  Report Type: 
  Country: None (occurrence: None)
  Receive Date: 20080722
  Receipt Date: 20080715
  Transmission Date: 20090109
  Serious: Yes (Hospitalization, Disabling)
  Sender: FDA-Public Use
  Company Number: US-MERCK-0807USA02932

PATIENT
  Age: 77 Year
  Sex: Male

DRUGS (5)
  1. FOSAMAX [Suspect]
     Indication: OSTEOPOROSIS
     Route: 048
     Dates: end: 20080706
  2. PRILOSEC [Concomitant]
     Route: 065
  3. BISOPROLOL [Concomitant]
     Route: 065
  4. HYDROCHLOROTHIAZIDE [Concomitant]
     Route: 048
  5. AMITRIPTYLINE HYDROCHLORIDE [Concomitant]
     Route: 065

REACTIONS (6)
  - APHONIA [None]
  - ASPIRATION [None]
  - BRONCHITIS [None]
  - FOREIGN BODY TRAUMA [None]
  - LARYNGITIS [None]
  - PAIN [None]
